FAERS Safety Report 6605003-4 (Version None)
Quarter: 2010Q1

REPORT INFORMATION
  Report Type: 
  Country: None (occurrence: None)
  Receive Date: 20100226
  Receipt Date: 20100222
  Transmission Date: 20100710
  Serious: Yes (Hospitalization)
  Sender: FDA-Public Use
  Company Number: SE-TEVA-225227ISR

PATIENT
  Sex: Male
  Weight: 0.95 kg

DRUGS (1)
  1. COPAXONE [Suspect]
     Indication: MULTIPLE SCLEROSIS
     Route: 064
     Dates: start: 20090707, end: 20090723

REACTIONS (1)
  - SMALL FOR DATES BABY [None]
